FAERS Safety Report 7529293-9 (Version None)
Quarter: 2011Q2

REPORT INFORMATION
  Report Type: 
  Country: None (occurrence: None)
  Receive Date: 20110607
  Receipt Date: 20110530
  Transmission Date: 20111010
  Serious: Yes (Death, Other)
  Sender: FDA-Public Use
  Company Number: JP-ROCHE-779862

PATIENT

DRUGS (3)
  1. CYCLOSPORINE [Suspect]
     Dosage: DRUG NAME: CYCLOSPORINE.
     Route: 065
  2. MYCOPHENOLATE MEFETIL [Suspect]
     Route: 065
  3. TACROLIMUS [Suspect]
     Route: 065

REACTIONS (24)
  - CEREBRAL HAEMORRHAGE [None]
  - ALOPECIA [None]
  - HYPOCALCAEMIA [None]
  - ABDOMINAL PAIN [None]
  - NEUTROPENIA [None]
  - BLOOD CREATINE PHOSPHOKINASE INCREASED [None]
  - SEPTIC SHOCK [None]
  - BONE MARROW FAILURE [None]
  - GASTROINTESTINAL HAEMORRHAGE [None]
  - DIARRHOEA [None]
  - THROMBOTIC MICROANGIOPATHY [None]
  - THROMBOCYTOPENIA [None]
  - PNEUMONIA BACTERIAL [None]
  - PNEUMONIA CYTOMEGALOVIRAL [None]
  - VOMITING [None]
  - CONSTIPATION [None]
  - HEPATIC FUNCTION ABNORMAL [None]
  - PNEUMONIA FUNGAL [None]
  - ASPERGILLOSIS [None]
  - CYSTITIS HAEMORRHAGIC [None]
  - PNEUMONIA STAPHYLOCOCCAL [None]
  - SEPSIS [None]
  - NAUSEA [None]
  - DIABETES MELLITUS [None]
